FAERS Safety Report 7304527-4 (Version None)
Quarter: 2011Q1

REPORT INFORMATION
  Report Type: 
  Country: None (occurrence: None)
  Receive Date: 20110221
  Receipt Date: 20110214
  Transmission Date: 20110831
  Serious: Yes (Hospitalization)
  Sender: FDA-Public Use
  Company Number: US-BRISTOL-MYERS SQUIBB COMPANY-15549892

PATIENT
  Age: 79 Year
  Sex: Female

DRUGS (17)
  1. TEMAZEPAM [Concomitant]
  2. TYLENOL W/ CODEINE [Concomitant]
  3. GLIPIZIDE [Concomitant]
  4. FLEXERIL [Concomitant]
  5. METHOTREXATE [Concomitant]
  6. LEVOTHYROXINE [Concomitant]
  7. FOLIC ACID [Concomitant]
  8. FUROSEMIDE [Concomitant]
  9. AMITRIPTYLINE [Concomitant]
  10. LOMOTIL [Concomitant]
  11. DIGOXIN [Concomitant]
  12. OXYBUTYNIN [Concomitant]
  13. SPIRIVA [Concomitant]
  14. MECLIZINE [Concomitant]
  15. AGGRENOX [Concomitant]
  16. ORENCIA [Suspect]
     Dosage: LAST DOSE ON 02DEC2010
     Dates: start: 20090101
  17. PACERONE [Concomitant]

REACTIONS (1)
  - PULMONARY MASS [None]
